FAERS Safety Report 4342245-5 (Version None)
Quarter: 2004Q2

REPORT INFORMATION
  Report Type: 
  Country: None (occurrence: None)
  Receive Date: 20040415
  Receipt Date: 20040405
  Transmission Date: 20050107
  Serious: Yes (Death)
  Sender: FDA-Public Use
  Company Number: US-SHR-04-023619

PATIENT
  Age: 70 Year
  Sex: Female
  Weight: 64.9 kg

DRUGS (9)
  1. BETASERON [Suspect]
     Indication: MULTIPLE SCLEROSIS
     Dosage: SEE IMAGE
     Route: 058
     Dates: start: 20031101, end: 20031101
  2. BETASERON [Suspect]
     Indication: MULTIPLE SCLEROSIS
     Dosage: SEE IMAGE
     Route: 058
     Dates: start: 20040201, end: 20040222
  3. BETASERON [Suspect]
     Indication: MULTIPLE SCLEROSIS
     Dosage: SEE IMAGE
     Route: 058
     Dates: start: 20040222, end: 20040329
  4. ACCUPRIL [Concomitant]
  5. GLUCOTROL [Concomitant]
  6. DILANTIN [Concomitant]
  7. MYSOLINE ^ASTRA^ (PRIMIDONE) [Concomitant]
  8. CARBATOL (CARBAMAZEPINE) [Concomitant]
  9. VALIUM [Concomitant]

REACTIONS (8)
  - CHEST PAIN [None]
  - CHRONIC OBSTRUCTIVE AIRWAYS DISEASE [None]
  - CONDITION AGGRAVATED [None]
  - DYSKINESIA [None]
  - DYSPEPSIA [None]
  - HYPERTENSION [None]
  - MULTIPLE SCLEROSIS [None]
  - REFUSAL OF TREATMENT BY PATIENT [None]
